FAERS Safety Report 7374936-6 (Version None)
Quarter: 2011Q1

REPORT INFORMATION
  Report Type: 
  Country: None (occurrence: None)
  Receive Date: 20110325
  Receipt Date: 20110310
  Transmission Date: 20110831
  Serious: Yes (Hospitalization)
  Sender: FDA-Public Use
  Company Number: PHHY2011ES06443

PATIENT
  Age: 69 Year
  Sex: Male

DRUGS (8)
  1. CARDURA [Concomitant]
  2. EMCONCOR [Concomitant]
  3. ASPIRIN [Concomitant]
  4. MICARDIS [Concomitant]
  5. OMEPRAZOLE [Concomitant]
  6. SIMVASTATIN [Concomitant]
  7. RASILEZ [Suspect]
  8. HEMOVAS [Concomitant]

REACTIONS (3)
  - HEPATITIS TOXIC [None]
  - JAUNDICE [None]
  - BLOOD BILIRUBIN INCREASED [None]
